FAERS Safety Report 4889215-6 (Version None)
Quarter: 2006Q1

REPORT INFORMATION
  Report Type: 
  Country: None (occurrence: None)
  Receive Date: 20060120
  Receipt Date: 20060120
  Transmission Date: 20060701
  Serious: Yes (Life-Threatening, Hospitalization, Disabling)
  Sender: FDA-Public Use
  Company Number: None

PATIENT
  Sex: Female
  Weight: 81.6475 kg

DRUGS (4)
  1. SEROQUEL [Suspect]
     Indication: PSYCHOTIC DISORDER
     Dosage: 1 GM/DAY (BUT RECENT INCREASE IN DOSE)
  2. SEROQUEL [Suspect]
     Indication: SCHIZOPHRENIA
     Dosage: 1 GM/DAY (BUT RECENT INCREASE IN DOSE)
  3. HALDOL [Concomitant]
  4. SYNTHROID [Concomitant]

REACTIONS (12)
  - ABDOMINAL PAIN [None]
  - DIALYSIS [None]
  - DIARRHOEA [None]
  - GASTROINTESTINAL NECROSIS [None]
  - HYPOTENSION [None]
  - HYPOTHYROIDISM [None]
  - MESENTERIC VASCULAR INSUFFICIENCY [None]
  - MYOCARDIAL ISCHAEMIA [None]
  - PULMONARY OEDEMA [None]
  - RENAL FAILURE ACUTE [None]
  - RENAL FAILURE CHRONIC [None]
  - SEPTIC SHOCK [None]
